FAERS Safety Report 13508035 (Version 1)
Quarter: 2017Q2

REPORT INFORMATION
  Report Type: Report from Study
  Country: DE (occurrence: DE)
  Receive Date: 20170503
  Receipt Date: 20170503
  Transmission Date: 20170830
  Serious: Yes (Other)
  Sender: FDA-Public Use
  Company Number: DE-ROCHE-1928840

PATIENT
  Age: 73 Year
  Sex: Female
  Weight: 55 kg

DRUGS (15)
  1. ISOZID [Concomitant]
     Active Substance: ISONIAZID
     Route: 065
  2. MCP [Concomitant]
     Active Substance: METOCLOPRAMIDE HYDROCHLORIDE
     Route: 065
  3. METHOTREXATE. [Concomitant]
     Active Substance: METHOTREXATE
     Route: 058
  4. FOLSAN [Concomitant]
     Active Substance: FOLIC ACID
     Route: 065
  5. PLAVIX [Concomitant]
     Active Substance: CLOPIDOGREL BISULFATE
     Route: 065
  6. TOCILIZUMAB [Suspect]
     Active Substance: TOCILIZUMAB
     Indication: RHEUMATOID ARTHRITIS
     Route: 042
     Dates: start: 20110802, end: 20120412
  7. DECORTIN [Concomitant]
     Active Substance: PREDNISONE
     Route: 065
  8. TARDYFERON (FERROUS SULFATE) [Concomitant]
     Active Substance: FERROUS SULFATE
     Route: 065
  9. PANTOZOL [Concomitant]
     Active Substance: PANTOPRAZOLE SODIUM
     Route: 065
  10. VIGANTOLETTEN [Concomitant]
     Active Substance: CHOLECALCIFEROL
     Route: 065
  11. ALLOPURINOL. [Concomitant]
     Active Substance: ALLOPURINOL
     Route: 065
  12. OSTEOPLUS (GERMANY) [Concomitant]
     Route: 065
  13. ATACAND PLUS [Concomitant]
     Active Substance: CANDESARTAN CILEXETIL\HYDROCHLOROTHIAZIDE
     Dosage: 16/12.5 MG
     Route: 065
  14. AQUAPHOR (GERMANY) [Concomitant]
     Route: 065
  15. METODURA [Concomitant]
     Route: 065

REACTIONS (4)
  - Gastrointestinal ulcer [Unknown]
  - Nasal neoplasm [Recovered/Resolved]
  - Pemphigoid [Recovering/Resolving]
  - Stomatitis [Recovered/Resolved]

NARRATIVE: CASE EVENT DATE: 2012
